FAERS Safety Report 5067433-4 (Version None)
Quarter: 2006Q3

REPORT INFORMATION
  Report Type: 
  Country: None (occurrence: None)
  Receive Date: 20060726
  Receipt Date: 20060707
  Transmission Date: 20061208
  Serious: No
  Sender: FDA-Public Use
  Company Number: 02100-JPN-05-0355

PATIENT
  Age: 71 Year
  Sex: Male

DRUGS (4)
  1. CILOSTAZOL [Suspect]
     Indication: CEREBRAL INFARCTION
     Dosage: 100 MG, ORAL
     Route: 048
     Dates: start: 20040811, end: 20040817
  2. CILOSTAZOL [Suspect]
     Indication: CEREBRAL INFARCTION
     Dosage: 100 MG, ORAL
     Route: 048
     Dates: start: 20040825
  3. OZAGREL SODIUM [Suspect]
     Dosage: 80 MG, IV DRIP
     Route: 041
     Dates: start: 20040802, end: 20040811
  4. PIOGLITAZONE HYDROCHLORIDE [Concomitant]

REACTIONS (8)
  - BLOOD CREATININE INCREASED [None]
  - BLOOD LACTATE DEHYDROGENASE INCREASED [None]
  - BLOOD PRESSURE SYSTOLIC INCREASED [None]
  - BLOOD UREA INCREASED [None]
  - CEREBELLAR INFARCTION [None]
  - GAMMA-GLUTAMYLTRANSFERASE INCREASED [None]
  - HAEMORRHAGIC INFARCTION [None]
  - HYPOTENSION [None]
